FAERS Safety Report 11480494 (Version 1)
Quarter: 2015Q3

REPORT INFORMATION
  Report Type: Report from Study
  Country: DE (occurrence: DE)
  Receive Date: 20150909
  Receipt Date: 20150909
  Transmission Date: 20151125
  Serious: Yes (Hospitalization, Other)
  Sender: FDA-Public Use
  Company Number: DE-JAZZ-2014-DE-004462

PATIENT
  Age: 21 Year
  Sex: Female
  Weight: 75 kg

DRUGS (6)
  1. XYREM [Suspect]
     Active Substance: SODIUM OXYBATE
     Indication: NARCOLEPSY
     Dosage: 5 G, DAILY
     Route: 048
     Dates: start: 20130411, end: 20130417
  2. XYREM [Suspect]
     Active Substance: SODIUM OXYBATE
     Dosage: 6 G, DAILY
     Dates: start: 20130902, end: 20140228
  3. L-THYROXIN [Concomitant]
     Active Substance: LEVOTHYROXINE SODIUM
     Indication: THYROIDITIS
     Dosage: 25 ?G, QD
     Route: 048
     Dates: start: 200805
  4. MODAFINIL. [Concomitant]
     Active Substance: MODAFINIL
     Indication: NARCOLEPSY
     Dosage: 100 MG, BID
     Route: 048
     Dates: start: 200910
  5. XYREM [Suspect]
     Active Substance: SODIUM OXYBATE
     Indication: CATAPLEXY
     Dosage: 6 G, DAILY
     Dates: start: 20130418, end: 20130812
  6. XYREM [Suspect]
     Active Substance: SODIUM OXYBATE
     Dosage: 6 G, DAILY
     Route: 048
     Dates: start: 20140402, end: 20140824

REACTIONS (1)
  - Optic neuritis [Recovered/Resolved]

NARRATIVE: CASE EVENT DATE: 20140208
